FAERS Safety Report 9489997 (Version 3)
Quarter: 2013Q4

REPORT INFORMATION
  Report Type: Spontaneous
  Country: US (occurrence: US)
  Receive Date: 20130829
  Receipt Date: 20131212
  Transmission Date: 20140711
  Serious: Yes (Other)
  Sender: FDA-Public Use
  Company Number: US-ALLERGAN-1312918US

PATIENT
  Age: 66 Year
  Sex: Female

DRUGS (3)
  1. FLUOROMETHOLONE, 0.1% [Suspect]
     Indication: ERYTHEMA
     Dosage: 1 GTT, QID
     Route: 047
     Dates: start: 20130803
  2. FLUOROMETHOLONE, 0.1% [Suspect]
     Indication: INFLAMMATION
  3. GLAUCOMA EYE DROPS [Concomitant]
     Indication: GLAUCOMA
     Dosage: UNK
     Route: 047

REACTIONS (3)
  - Visual acuity reduced [Unknown]
  - Eye irritation [Recovered/Resolved]
  - Drug ineffective [Unknown]
